FAERS Safety Report 21973600 (Version 1)
Quarter: 2023Q1

REPORT INFORMATION
  Report Type: Spontaneous
  Country: US (occurrence: US)
  Receive Date: 20230209
  Receipt Date: 20230209
  Transmission Date: 20230418
  Serious: No
  Sender: FDA-Public Use
  Company Number: US-TAKEDA-2023TUS013219

PATIENT
  Age: 65 Year
  Sex: Male

DRUGS (1)
  1. LIALDA [Suspect]
     Active Substance: MESALAMINE
     Indication: Colitis
     Dosage: 1.2 GRAM, QID
     Route: 065

REACTIONS (3)
  - Illness [Unknown]
  - Wrong technique in product usage process [Unknown]
  - Inability to afford medication [Unknown]
